FAERS Safety Report 9568082 (Version 1)
Quarter: 2013Q3

REPORT INFORMATION
  Report Type: Spontaneous
  Country: US (occurrence: US)
  Receive Date: 20130930
  Receipt Date: 20130930
  Transmission Date: 20140515
  Serious: No
  Sender: FDA-Public Use
  Company Number: US-AMGEN-USASP2013054241

PATIENT
  Age: 26 Year
  Sex: Female
  Weight: 120.64 kg

DRUGS (3)
  1. ENBREL [Suspect]
     Indication: PSORIATIC ARTHROPATHY
     Dosage: 50 MG, 2 TIMES/WK
     Route: 058
     Dates: start: 20130707
  2. ENBREL [Suspect]
     Indication: PSORIASIS
  3. FALMINA [Concomitant]
     Indication: CONTRACEPTION
     Dosage: UNK

REACTIONS (3)
  - Injection site bruising [Recovered/Resolved]
  - Injection site pain [Unknown]
  - Psoriasis [Unknown]
